FAERS Safety Report 5682810-6 (Version None)
Quarter: 2008Q1

REPORT INFORMATION
  Report Type: 
  Country: None (occurrence: None)
  Receive Date: 20080327
  Receipt Date: 20080318
  Transmission Date: 20080703
  Serious: Yes (Congenital Anomaly)
  Sender: FDA-Public Use
  Company Number: A0681885A

PATIENT
  Sex: Male

DRUGS (3)
  1. PAXIL CR [Suspect]
     Indication: DRUG USE FOR UNKNOWN INDICATION
     Dosage: 40MG PER DAY
     Dates: start: 19970101, end: 20050701
  2. CLONAZEPAM [Concomitant]
  3. VITAMIN TAB [Concomitant]

REACTIONS (3)
  - ANKYLOGLOSSIA CONGENITAL [None]
  - DRUG EXPOSURE DURING PREGNANCY [None]
  - TALIPES [None]
